FAERS Safety Report 6104800-1 (Version None)
Quarter: 2009Q1

REPORT INFORMATION
  Report Type: 
  Country: None (occurrence: None)
  Receive Date: 20090306
  Receipt Date: 20090225
  Transmission Date: 20090719
  Serious: Yes (Other)
  Sender: FDA-Public Use
  Company Number: PHBS2009US00926

PATIENT

DRUGS (3)
  1. RITALIN [Suspect]
     Indication: ATTENTION DEFICIT/HYPERACTIVITY DISORDER
     Dosage: UNK
  2. DEXMETHYLPHENIDATE HCL [Concomitant]
     Dosage: UNK
  3. ARIPIPRAZOLE [Concomitant]
     Dosage: UNK

REACTIONS (10)
  - ELECTROOCULOGRAM ABNORMAL [None]
  - EYE DISORDER [None]
  - MACULOPATHY [None]
  - MYDRIASIS [None]
  - OPPOSITIONAL DEFIANT DISORDER [None]
  - OPTIC DISC DRUSEN [None]
  - RETINAL DEGENERATION [None]
  - RETINAL DISORDER [None]
  - RETINAL PIGMENTATION [None]
  - VISUAL ACUITY TESTS ABNORMAL [None]
